FAERS Safety Report 19586903 (Version 1)
Quarter: 2021Q3

REPORT INFORMATION
  Report Type: Spontaneous
  Country: CN (occurrence: CN)
  Receive Date: 20210721
  Receipt Date: 20210721
  Transmission Date: 20211014
  Serious: Yes (Life-Threatening)
  Sender: FDA-Public Use
  Company Number: CN-ROCHE-2870462

PATIENT
  Age: 66 Year
  Sex: Male
  Weight: 80 kg

DRUGS (1)
  1. ACTILYSE [Suspect]
     Active Substance: ALTEPLASE
     Indication: THROMBOLYSIS
     Route: 042
     Dates: start: 20210625, end: 20210625

REACTIONS (7)
  - Tic [Recovering/Resolving]
  - Respiratory arrest [Recovering/Resolving]
  - Body temperature increased [Recovering/Resolving]
  - Hallucination [Recovering/Resolving]
  - Oxygen saturation decreased [Recovering/Resolving]
  - Gingival bleeding [Recovering/Resolving]
  - Staring [Recovering/Resolving]

NARRATIVE: CASE EVENT DATE: 20210625
